FAERS Safety Report 20702672 (Version 1)
Quarter: 2022Q2

REPORT INFORMATION
  Report Type: Spontaneous
  Country: US (occurrence: US)
  Receive Date: 20220412
  Receipt Date: 20220412
  Transmission Date: 20220721
  Serious: No
  Sender: FDA-Public Use
  Company Number: US-PFIZER INC-202101148383

PATIENT
  Age: 65 Year
  Sex: Female
  Weight: 79.365 kg

DRUGS (3)
  1. IBRANCE [Suspect]
     Active Substance: PALBOCICLIB
     Indication: Breast cancer female
     Dosage: 125 MG, CYCLIC X 21 DAYS THEN 7 DAYS OFF
     Route: 048
     Dates: start: 20210503
  2. LETROZOLE [Concomitant]
     Active Substance: LETROZOLE
  3. LEVOTHYROXINE SODIUM [Concomitant]
     Active Substance: LEVOTHYROXINE SODIUM

REACTIONS (2)
  - Weight increased [Unknown]
  - Food craving [Unknown]
